FAERS Safety Report 11288493 (Version 3)
Quarter: 2015Q3

REPORT INFORMATION
  Report Type: Spontaneous
  Country: US (occurrence: US)
  Receive Date: 20150721
  Receipt Date: 20150811
  Transmission Date: 20151125
  Serious: No
  Sender: FDA-Public Use
  Company Number: US-009507513-1507USA003589

PATIENT
  Age: 50 Year
  Sex: Female

DRUGS (2)
  1. NOXAFIL [Suspect]
     Active Substance: POSACONAZOLE
     Dosage: 200 MG, BID, STRENGTH 200/5 (UNSPECIFIED UNITS)
     Route: 048
  2. NOXAFIL [Suspect]
     Active Substance: POSACONAZOLE
     Dosage: 200 MG, BID, STRENGTH 200/5 (UNSPECIFIED UNITS)
     Route: 048
     Dates: start: 2011

REACTIONS (5)
  - Dysgeusia [Unknown]
  - Drug dose omission [Unknown]
  - No adverse event [Unknown]
  - Dysgeusia [Unknown]
  - Product quality issue [Unknown]

NARRATIVE: CASE EVENT DATE: 2015
